FAERS Safety Report 4912720-0 (Version None)
Quarter: 2006Q1

REPORT INFORMATION
  Report Type: 
  Country: None (occurrence: None)
  Receive Date: 20060215
  Receipt Date: 20051011
  Transmission Date: 20060701
  Serious: Yes (Death)
  Sender: FDA-Public Use
  Company Number: US-MERCK-0510USA06909

PATIENT
  Age: 46 Year
  Sex: Male
  Weight: 86 kg

DRUGS (12)
  1. VIOXX [Suspect]
     Indication: BACK PAIN
     Route: 048
     Dates: start: 20000401, end: 20000101
  2. FLEXERIL [Concomitant]
     Indication: BACK PAIN
     Route: 065
     Dates: start: 20000401
  3. HYDROCODONE BITARTRATE [Concomitant]
     Indication: BACK PAIN
     Route: 065
     Dates: start: 20000901
  4. DARVOCET-N 50 [Concomitant]
     Indication: BACK PAIN
     Route: 065
     Dates: start: 20000401
  5. MOTRIN [Concomitant]
     Indication: BACK PAIN
     Route: 065
  6. CLONAZEPAM [Concomitant]
     Indication: ANXIETY
     Route: 065
  7. OXYCONTIN [Concomitant]
     Indication: BACK PAIN
     Route: 065
  8. VICOPROFEN [Concomitant]
     Route: 065
  9. ACETAMINOPHEN [Concomitant]
     Route: 065
  10. ACETAMINOPHEN [Concomitant]
     Route: 065
     Dates: start: 20000801
  11. IBUPROFEN [Concomitant]
     Route: 065
     Dates: start: 20000901, end: 20001001
  12. LUVOX [Concomitant]
     Indication: DEPRESSION
     Route: 065

REACTIONS (1)
  - ARTERIOSCLEROSIS [None]
